FAERS Safety Report 14205669 (Version 2)
Quarter: 2017Q4

REPORT INFORMATION
  Report Type: Spontaneous
  Country: BR (occurrence: BR)
  Receive Date: 20171120
  Receipt Date: 20171121
  Transmission Date: 20180321
  Serious: Yes (Other)
  Sender: FDA-Public Use
  Company Number: BR-SA-2017SA222976

PATIENT
  Sex: Female
  Weight: 70 kg

DRUGS (14)
  1. DACTIL OB [Concomitant]
     Active Substance: PIPERIDOLATE HYDROCHLORIDE
     Indication: UTERINE CONTRACTIONS DURING PREGNANCY
     Route: 048
  2. BUSCOPAN [Concomitant]
     Active Substance: BUTYLSCOPOLAMINE BROMIDE
     Indication: MUSCLE SPASMS
     Dosage: 1 TABLET PER DAY / WHENEVER EXPERIENCING CRAMPS
     Route: 048
  3. MAGNESIUM [Concomitant]
     Active Substance: MAGNESIUM
     Indication: UTERINE CONTRACTIONS ABNORMAL
     Route: 048
     Dates: start: 20171101
  4. CLEXANE [Suspect]
     Active Substance: ENOXAPARIN SODIUM
     Indication: HYPERCOAGULATION
     Dosage: SYRINGES
     Route: 058
     Dates: start: 20170615, end: 20170924
  5. CLEXANE [Suspect]
     Active Substance: ENOXAPARIN SODIUM
     Indication: HYPERCOAGULATION
     Dosage: SYRINGES
     Route: 058
     Dates: start: 20170925
  6. TYLENOL [Concomitant]
     Active Substance: ACETAMINOPHEN
     Indication: HEADACHE
     Dosage: 1 TABLET OF 500MG / WHEN NECESSARY
     Route: 048
  7. CLEXANE [Suspect]
     Active Substance: ENOXAPARIN SODIUM
     Indication: HYPERCOAGULATION
     Route: 058
     Dates: start: 20170829, end: 20170829
  8. OGESTAN [Concomitant]
     Indication: VITAMIN SUPPLEMENTATION
     Route: 048
     Dates: start: 201708
  9. EUTHYROX [Concomitant]
     Active Substance: LEVOTHYROXINE SODIUM
     Indication: HYPOTHYROIDISM
     Route: 048
     Dates: start: 200711
  10. DROPERIDOL/FENTANYL [Concomitant]
     Indication: MALAISE
     Dosage: 1 TABLET PER DAY / WHENEVER EXPERIENCING SICKNESS
     Route: 048
     Dates: start: 201709
  11. SERTRALINE [Concomitant]
     Active Substance: SERTRALINE HYDROCHLORIDE
     Indication: DEPRESSION
     Route: 048
     Dates: start: 201709
  12. TYLENOL [Concomitant]
     Active Substance: ACETAMINOPHEN
     Indication: MUSCLE SPASMS
     Dosage: 1 TABLET OF 500MG / WHEN NECESSARY
     Route: 048
  13. UTROGESTAN [Concomitant]
     Active Substance: PROGESTERONE
     Indication: HAEMORRHAGE
     Route: 048
  14. UTROGESTAN [Concomitant]
     Active Substance: PROGESTERONE
     Indication: CERVIX DISORDER
     Route: 048

REACTIONS (6)
  - Medication error [Unknown]
  - Surgery [Unknown]
  - Anti factor Xa activity decreased [Recovering/Resolving]
  - Exposure during pregnancy [Unknown]
  - Syringe issue [Unknown]
  - Drug ineffective [Unknown]

NARRATIVE: CASE EVENT DATE: 20170923
